FAERS Safety Report 10409576 (Version 1)
Quarter: 2014Q3

REPORT INFORMATION
  Report Type: Spontaneous
  Country: US (occurrence: US)
  Receive Date: 20140826
  Receipt Date: 20140826
  Transmission Date: 20150326
  Serious: Yes (Life-Threatening, Other)
  Sender: FDA-Public Use
  Company Number: US-PFIZER INC-2014235574

PATIENT
  Age: 69 Year
  Sex: Male

DRUGS (1)
  1. NIFEDIPINE. [Suspect]
     Active Substance: NIFEDIPINE
     Dosage: 90 MG PILL AND ADMINISTERED IT THROUGH NASAL DUODENAL TUBE

REACTIONS (5)
  - Depressed level of consciousness [Unknown]
  - Heart rate increased [Recovered/Resolved]
  - Intentional product misuse [Unknown]
  - Toxicity to various agents [Recovered/Resolved]
  - Hypotension [Recovered/Resolved]
